FAERS Safety Report 16250707 (Version 1)
Quarter: 2019Q2

REPORT INFORMATION
  Report Type: Report from Study
  Country: US (occurrence: US)
  Receive Date: 20190429
  Receipt Date: 20190429
  Transmission Date: 20190711
  Serious: Yes (Death)
  Sender: FDA-Public Use
  Company Number: US-OTSUKA-2019_015286

PATIENT
  Age: 61 Year
  Sex: Male

DRUGS (1)
  1. TOLVAPTAN [Suspect]
     Active Substance: TOLVAPTAN
     Indication: INAPPROPRIATE ANTIDIURETIC HORMONE SECRETION
     Dosage: 30 MG, UNK
     Route: 065
     Dates: start: 20190131

REACTIONS (1)
  - Death [Fatal]

NARRATIVE: CASE EVENT DATE: 20190202
